FAERS Safety Report 14559523 (Version 1)
Quarter: 2018Q1

REPORT INFORMATION
  Report Type: Spontaneous
  Country: FI (occurrence: FI)
  Receive Date: 20180221
  Receipt Date: 20180221
  Transmission Date: 20180509
  Serious: Yes (Other)
  Sender: FDA-Public Use
  Company Number: FI-TEVA-2018-FI-857528

PATIENT
  Age: 52 Year
  Sex: Female

DRUGS (5)
  1. SYMBICORT [Suspect]
     Active Substance: BUDESONIDE\FORMOTEROL FUMARATE DIHYDRATE
     Dosage: ONE INHALATION TWO TIMES A DAY
     Route: 055
  2. BUDESONIDE. [Suspect]
     Active Substance: BUDESONIDE
     Indication: ASTHMA
     Route: 055
     Dates: start: 201701, end: 201706
  3. BUVENTOL [Concomitant]
     Indication: ASTHMA
     Dates: start: 201701
  4. SYMBICORT [Suspect]
     Active Substance: BUDESONIDE\FORMOTEROL FUMARATE DIHYDRATE
     Indication: ASTHMA
     Dosage: ONE INHALATION 2 PER DAY WHEN IT HAS BEEN PRESCRIBED AS TWO DOSES TWICE PER DAY
     Route: 055
     Dates: start: 201706
  5. SYMBICORT [Suspect]
     Active Substance: BUDESONIDE\FORMOTEROL FUMARATE DIHYDRATE
     Dosage: TWO INHALATIONS TWO TIMES A DAY UNTIL FLU WAS OVER
     Route: 055

REACTIONS (5)
  - Face oedema [Recovered/Resolved]
  - Device issue [Unknown]
  - Drug dose omission [Unknown]
  - Erythema [Recovered/Resolved]
  - Influenza [Recovered/Resolved]

NARRATIVE: CASE EVENT DATE: 201701
